FAERS Safety Report 5935077-5 (Version None)
Quarter: 2008Q4

REPORT INFORMATION
  Report Type: 
  Country: None (occurrence: None)
  Receive Date: 20081030
  Receipt Date: 20081002
  Transmission Date: 20090506
  Serious: No
  Sender: FDA-Public Use
  Company Number: US-BAYER-200817693NA

PATIENT
  Age: 22 Year
  Sex: Female
  Weight: 57 kg

DRUGS (4)
  1. YAZ [Suspect]
     Indication: CONTRACEPTION
     Route: 048
     Dates: start: 20080101
  2. SIX MP [Concomitant]
     Indication: COLITIS ULCERATIVE
  3. ASACOL [Concomitant]
     Indication: COLITIS ULCERATIVE
  4. PREDNISONE TAB [Concomitant]
     Indication: COLITIS ULCERATIVE

REACTIONS (2)
  - OLIGOMENORRHOEA [None]
  - POLYMENORRHOEA [None]
